FAERS Safety Report 4509037-5 (Version None)
Quarter: 2004Q4

REPORT INFORMATION
  Report Type: 
  Country: None (occurrence: None)
  Receive Date: 20041122
  Receipt Date: 20041122
  Transmission Date: 20050328
  Serious: Yes (Life-Threatening)
  Sender: FDA-Public Use
  Company Number: None

PATIENT
  Age: 27 Year
  Sex: Female

DRUGS (3)
  1. LEVOFLOXACIN [Suspect]
     Indication: INFECTION
     Dosage: 500 MG
     Dates: start: 20040826, end: 20040831
  2. ONDANSETRON [Suspect]
     Indication: VOMITING
     Dosage: 8 MG
     Dates: start: 20040828, end: 20040830
  3. PROMETHAZINE [Suspect]
     Dosage: 25 MG
     Dates: start: 20040826, end: 20040830

REACTIONS (3)
  - COMA [None]
  - VENTRICULAR EXTRASYSTOLES [None]
  - VENTRICULAR TACHYCARDIA [None]
